FAERS Safety Report 5122443-3 (Version None)
Quarter: 2006Q4

REPORT INFORMATION
  Report Type: 
  Country: None (occurrence: None)
  Receive Date: 20061004
  Receipt Date: 20060919
  Transmission Date: 20070319
  Serious: Yes (Life-Threatening)
  Sender: FDA-Public Use
  Company Number: A-US2006-12342

PATIENT
  Age: 75 Year
  Sex: Female

DRUGS (14)
  1. TRACLEER [Suspect]
     Indication: PULMONARY HYPERTENSION
     Dosage: 125 MG, BID, ORAL; 62.5 MG,  BID, ORAL
     Route: 048
     Dates: start: 20040827, end: 20050110
  2. TRACLEER [Suspect]
     Indication: PULMONARY HYPERTENSION
     Dosage: 125 MG, BID, ORAL; 62.5 MG,  BID, ORAL
     Route: 048
     Dates: start: 20050111, end: 20060405
  3. PREDNISONE TAB [Concomitant]
  4. COUMADIN [Concomitant]
  5. OS-CAL + D (COLECALCIFEROL, CALCIUM CARBONATE) [Concomitant]
  6. SODIUM BICARBONATE IN PLASTIC CONTAINER [Concomitant]
  7. HYDROXYCHLOROQUINE SULFATE [Concomitant]
  8. ASCORBIC ACID [Concomitant]
  9. FERROUS SULFATE TAB [Concomitant]
  10. VITAMIN B COMPLEX (PYRIDOXINE HYDROCHLORIDE, RIBOFLAVIN, CALCIUM PANTO [Concomitant]
  11. STELIN (AZELASTINE HYDROCHLORIDE) [Concomitant]
  12. LORATADINE [Concomitant]
  13. LOPRESSOR (METOPROLOLOL TARTRATE) [Concomitant]
  14. HYDROCHLOROTHIAZIDE [Concomitant]

REACTIONS (7)
  - CONFUSIONAL STATE [None]
  - DECREASED APPETITE [None]
  - FALL [None]
  - GENERAL PHYSICAL HEALTH DETERIORATION [None]
  - HYPOTENSION [None]
  - INCONTINENCE [None]
  - ORAL INTAKE REDUCED [None]
